FAERS Safety Report 6269199-9 (Version None)
Quarter: 2009Q3

REPORT INFORMATION
  Report Type: 
  Country: None (occurrence: None)
  Receive Date: 20090715
  Receipt Date: 20090709
  Transmission Date: 20100115
  Serious: Yes (Hospitalization)
  Sender: FDA-Public Use
  Company Number: US-JNJFOC-20090702970

PATIENT
  Age: 25 Year
  Sex: Male

DRUGS (3)
  1. ULTRACET [Suspect]
     Indication: DRUG USE FOR UNKNOWN INDICATION
     Route: 065
  2. CYCLOBENZAPRINE [Suspect]
     Indication: DRUG USE FOR UNKNOWN INDICATION
     Route: 065
  3. OXYCODONE [Concomitant]

REACTIONS (9)
  - BLISTER [None]
  - CONFUSIONAL STATE [None]
  - ELECTROCARDIOGRAM QT PROLONGED [None]
  - HALLUCINATION [None]
  - INTENTIONAL DRUG MISUSE [None]
  - RASH GENERALISED [None]
  - RASH PUSTULAR [None]
  - SOMNOLENCE [None]
  - UNRESPONSIVE TO STIMULI [None]
